FAERS Safety Report 20416786 (Version 2)
Quarter: 2022Q1

REPORT INFORMATION
  Report Type: Spontaneous
  Country: US (occurrence: None)
  Receive Date: 20220202
  Receipt Date: 20220301
  Transmission Date: 20220423
  Serious: No
  Sender: FDA-Public Use
  Company Number: 2022A038551

PATIENT
  Age: 82 Year
  Sex: Female
  Weight: 46.7 kg

DRUGS (1)
  1. BUDESONIDE\FORMOTEROL\GLYCOPYRRONIUM [Suspect]
     Active Substance: BUDESONIDE\FORMOTEROL\GLYCOPYRRONIUM
     Indication: Bronchiectasis
     Dosage: 160MCG/9MCG/4.8MCG 2 PUFFS TWICE A DAY
     Route: 055
     Dates: start: 20220116

REACTIONS (6)
  - Oral discomfort [Unknown]
  - Paraesthesia oral [Unknown]
  - Mouth swelling [Unknown]
  - Hypersensitivity [Unknown]
  - Wrong technique in device usage process [Unknown]
  - Intentional product misuse [Unknown]

NARRATIVE: CASE EVENT DATE: 20210116
